FAERS Safety Report 9850960 (Version 2)
Quarter: 2014Q1

REPORT INFORMATION
  Report Type: Report from Study
  Country: US (occurrence: US)
  Receive Date: 20140128
  Receipt Date: 20140211
  Transmission Date: 20141002
  Serious: Yes (Hospitalization)
  Sender: FDA-Public Use
  Company Number: US-ACTELION-A-NJ2014-94009

PATIENT
  Age: 27 Year
  Sex: Male

DRUGS (4)
  1. VELETRI [Suspect]
     Indication: PULMONARY ARTERIAL HYPERTENSION
     Dosage: 74 NG/KG, PER MIN
     Route: 042
     Dates: start: 201308, end: 20140127
  2. VELETRI [Suspect]
     Dosage: 67 NG/KG, PER MIN
     Route: 042
     Dates: start: 20130731
  3. ADCIRCA [Concomitant]
  4. LETAIRIS [Concomitant]

REACTIONS (3)
  - Lung transplant [Recovered/Resolved]
  - Pulmonary arterial hypertension [Recovered/Resolved]
  - Hypoxia [Recovered/Resolved]
